FAERS Safety Report 5586871-4 (Version None)
Quarter: 2008Q1

REPORT INFORMATION
  Report Type: 
  Country: None (occurrence: None)
  Receive Date: 20080108
  Receipt Date: 20080108
  Transmission Date: 20080703
  Serious: No
  Sender: FDA-Public Use
  Company Number: None

PATIENT
  Age: 39 Year
  Sex: Female
  Weight: 90.7194 kg

DRUGS (2)
  1. AVELOX [Suspect]
     Indication: BACTERIAL INFECTION
     Dosage: 1 TABLET DAILY FOR 5 DAYS PO
     Route: 048
     Dates: start: 20071219, end: 20071219
  2. AVELOX [Suspect]
     Indication: LUNG INFECTION
     Dosage: 1 TABLET DAILY FOR 5 DAYS PO
     Route: 048
     Dates: start: 20071219, end: 20071219

REACTIONS (7)
  - DIZZINESS [None]
  - FEELING ABNORMAL [None]
  - HEADACHE [None]
  - NAUSEA [None]
  - PANIC REACTION [None]
  - TENDON PAIN [None]
  - THINKING ABNORMAL [None]
